FAERS Safety Report 13294922 (Version 4)
Quarter: 2017Q3

REPORT INFORMATION
  Report Type: Spontaneous
  Country: US (occurrence: US)
  Receive Date: 20170303
  Receipt Date: 20170707
  Transmission Date: 20171127
  Serious: Yes (Other)
  Sender: FDA-Public Use
  Company Number: US-JNJFOC-20170118286

PATIENT
  Age: 63 Year
  Sex: Male
  Weight: 96 kg

DRUGS (18)
  1. XARELTO [Suspect]
     Active Substance: RIVAROXABAN
     Indication: THROMBOSIS
     Route: 048
     Dates: start: 201701, end: 201701
  2. XARELTO [Suspect]
     Active Substance: RIVAROXABAN
     Indication: THROMBOSIS
     Route: 048
     Dates: start: 201612, end: 201612
  3. FISH OIL [Concomitant]
     Active Substance: FISH OIL
     Indication: GENERAL PHYSICAL CONDITION
     Route: 065
     Dates: start: 2013
  4. IRON [Concomitant]
     Active Substance: IRON
     Indication: RED BLOOD CELL COUNT DECREASED
     Route: 065
  5. SAW PALMETTO [Concomitant]
     Active Substance: HERBALS\SAW PALMETTO
     Indication: NUTRITIONAL SUPPLEMENTATION
     Route: 065
     Dates: start: 2015, end: 201701
  6. SAW PALMETTO [Concomitant]
     Active Substance: HERBALS\SAW PALMETTO
     Indication: PROSTATOMEGALY
     Route: 065
     Dates: start: 2015, end: 201701
  7. VITAMIN B12 [Concomitant]
     Active Substance: CYANOCOBALAMIN
     Dosage: ONCE DAILY OR EVERY OTHER DAY
     Route: 065
  8. VITAMIN D [Concomitant]
     Active Substance: CHOLECALCIFEROL
     Route: 065
  9. ASTAXANTHIN [Concomitant]
     Route: 065
  10. XARELTO [Suspect]
     Active Substance: RIVAROXABAN
     Indication: PULMONARY EMBOLISM
     Route: 048
     Dates: start: 201701, end: 201701
  11. XARELTO [Suspect]
     Active Substance: RIVAROXABAN
     Indication: PULMONARY EMBOLISM
     Route: 048
     Dates: start: 20170112, end: 20170221
  12. XARELTO [Suspect]
     Active Substance: RIVAROXABAN
     Indication: THROMBOSIS
     Route: 048
     Dates: start: 20170112, end: 20170221
  13. XARELTO [Suspect]
     Active Substance: RIVAROXABAN
     Indication: PULMONARY EMBOLISM
     Route: 048
     Dates: start: 201612, end: 201612
  14. XARELTO [Suspect]
     Active Substance: RIVAROXABAN
     Indication: THROMBOSIS
     Route: 048
     Dates: start: 20160429, end: 201612
  15. XARELTO [Suspect]
     Active Substance: RIVAROXABAN
     Indication: PULMONARY EMBOLISM
     Route: 048
     Dates: start: 20160429, end: 201612
  16. CITALOPRAM [Concomitant]
     Active Substance: CITALOPRAM HYDROBROMIDE
     Indication: DEPRESSION
     Dosage: 10 MG OR 20 MG/ -/ 20 MG/ ONCE DAILY
     Route: 065
     Dates: start: 2013, end: 201612
  17. ALLEGRA [Concomitant]
     Active Substance: FEXOFENADINE HYDROCHLORIDE
     Indication: URTICARIA
     Route: 065
     Dates: start: 2014
  18. ZINC. [Concomitant]
     Active Substance: ZINC
     Dosage: EVERY OTHER DAY
     Route: 065

REACTIONS (3)
  - Haematuria [Recovered/Resolved]
  - Renal disorder [Recovered/Resolved]
  - Liver disorder [Recovered/Resolved]

NARRATIVE: CASE EVENT DATE: 20161129
